FAERS Safety Report 24258719 (Version 7)
Quarter: 2024Q4

REPORT INFORMATION
  Report Type: Spontaneous
  Country: US (occurrence: US)
  Receive Date: 20240828
  Receipt Date: 20241126
  Transmission Date: 20250114
  Serious: Yes (Death, Hospitalization)
  Sender: PFIZER
  Company Number: US-PFIZER INC-PV202400102529

PATIENT
  Age: 79 Year
  Sex: Male

DRUGS (8)
  1. TUKYSA [Interacting]
     Active Substance: TUCATINIB
     Dosage: 300 MG, 2X/DAY (150MG, 2 TABLETS TWICE A DAY)
  2. TUKYSA [Interacting]
     Active Substance: TUCATINIB
     Dosage: TAKE 2 TABS BY MOUTH 2 TIMES DAILY
     Route: 048
  3. ACETAMINOPHEN\HYDROCODONE [Interacting]
     Active Substance: ACETAMINOPHEN\HYDROCODONE
     Dosage: UNK
  4. HERCEPTIN [Suspect]
     Active Substance: TRASTUZUMAB
     Dosage: UNK
  5. XELODA [Suspect]
     Active Substance: CAPECITABINE
     Dosage: UNK
  6. CARVEDILOL [Concomitant]
     Active Substance: CARVEDILOL
     Indication: Cardiac disorder
     Dosage: UNK
  7. CALCIUM [Concomitant]
     Active Substance: CALCIUM
     Dosage: UNK
  8. FOCALIN [Concomitant]
     Active Substance: DEXMETHYLPHENIDATE HYDROCHLORIDE
     Dosage: UNK

REACTIONS (8)
  - Death [Fatal]
  - Infection [Unknown]
  - Drug interaction [Unknown]
  - Back pain [Unknown]
  - Arthralgia [Unknown]
  - Constipation [Unknown]
  - Rash macular [Unknown]
  - Fatigue [Unknown]

NARRATIVE: CASE EVENT DATE: 20241120
